FAERS Safety Report 17250516 (Version 1)
Quarter: 2020Q1

REPORT INFORMATION
  Report Type: Spontaneous
  Country: US (occurrence: US)
  Receive Date: 20200109
  Receipt Date: 20200109
  Transmission Date: 20200409
  Serious: Yes (Hospitalization, Other)
  Sender: FDA-Public Use
  Company Number: US-APOTEX-2020AP005127

PATIENT
  Age: 60 Year
  Sex: Female

DRUGS (4)
  1. METHOTREXATE. [Suspect]
     Active Substance: METHOTREXATE
     Indication: RHEUMATOID ARTHRITIS
     Dosage: 20 MG, Q.WK. INDUCTION WITH PLANS FOR FURTHER THERAPIES EVERY FOUR WEEKS
     Route: 065
  2. CIMZIA [Suspect]
     Active Substance: CERTOLIZUMAB PEGOL
     Indication: RHEUMATOID ARTHRITIS
     Dosage: 400 MG, UNK, INDUCTION WITH PLANS FOR FURTHER THERAPIES EVERY FOUR WEEKS
     Route: 065
  3. LEFLUNOMIDE. [Suspect]
     Active Substance: LEFLUNOMIDE
     Indication: RHEUMATOID ARTHRITIS
     Dosage: 20 MG, QD, INDUCTION WITH PLANS FOR FURTHER THERAPIES EVERY FOUR WEEKS
     Route: 065
  4. PREDNISONE. [Suspect]
     Active Substance: PREDNISONE
     Indication: RHEUMATOID ARTHRITIS
     Dosage: 5 MG, QD, INDUCTION WITH PLANS FOR FURTHER THERAPIES EVERY FOUR WEEKS
     Route: 065

REACTIONS (2)
  - Acute respiratory distress syndrome [Unknown]
  - Pneumocystis jirovecii pneumonia [Unknown]
